FAERS Safety Report 6562353-8 (Version None)
Quarter: 2010Q1

REPORT INFORMATION
  Report Type: 
  Country: None (occurrence: None)
  Receive Date: 20100130
  Receipt Date: 20091111
  Transmission Date: 20100710
  Serious: Yes (Other)
  Sender: FDA-Public Use
  Company Number: US-ABBOTT-09P-163-0608291-00

PATIENT
  Sex: Female
  Weight: 57.658 kg

DRUGS (1)
  1. HUMIRA [Suspect]
     Indication: PSORIATIC ARTHROPATHY
     Route: 058
     Dates: start: 20070101, end: 20091107

REACTIONS (9)
  - ARTHRALGIA [None]
  - BACK PAIN [None]
  - CHOLELITHIASIS [None]
  - EYE SWELLING [None]
  - HYPERTENSION [None]
  - NEPHROLITHIASIS [None]
  - PAIN IN EXTREMITY [None]
  - PYREXIA [None]
  - WEIGHT INCREASED [None]
